FAERS Safety Report 18916726 (Version 2)
Quarter: 2021Q1

REPORT INFORMATION
  Report Type: Spontaneous
  Country: ES (occurrence: ES)
  Receive Date: 20210219
  Receipt Date: 20210317
  Transmission Date: 20210420
  Serious: Yes (Other)
  Sender: FDA-Public Use
  Company Number: ES-CIRCASSIA PHARMACEUTICALS INC-2021ES001349

PATIENT

DRUGS (1)
  1. EKLIRA [Suspect]
     Active Substance: ACLIDINIUM BROMIDE
     Indication: PRODUCT USED FOR UNKNOWN INDICATION
     Dosage: UNK
     Route: 055

REACTIONS (4)
  - Incorrect dose administered by device [Unknown]
  - Asphyxia [Unknown]
  - Device malfunction [Unknown]
  - Drug ineffective [Unknown]
